FAERS Safety Report 8461201-9 (Version None)
Quarter: 2012Q2

REPORT INFORMATION
  Report Type: 
  Country: None (occurrence: None)
  Receive Date: 20120618
  Receipt Date: 20120618
  Transmission Date: 20120825
  Serious: Yes (Other)
  Sender: FDA-Public Use
  Company Number: None

PATIENT
  Sex: Male

DRUGS (3)
  1. NORVIR [Concomitant]
  2. EPZICOM [Suspect]
     Dosage: ONCE A DAY PO
     Route: 048
     Dates: start: 20111103, end: 20111213
  3. REYATAZ [Concomitant]

REACTIONS (4)
  - FALL [None]
  - OEDEMA PERIPHERAL [None]
  - GAIT DISTURBANCE [None]
  - MUSCULAR WEAKNESS [None]
